FAERS Safety Report 20083864 (Version 4)
Quarter: 2022Q2

REPORT INFORMATION
  Report Type: Spontaneous
  Country: JP (occurrence: JP)
  Receive Date: 20211118
  Receipt Date: 20220629
  Transmission Date: 20220720
  Serious: Yes (Hospitalization, Other)
  Sender: FDA-Public Use
  Company Number: JP-UCBSA-2021044761

PATIENT
  Age: 7 Decade
  Sex: Female
  Weight: 47 kg

DRUGS (44)
  1. XYZAL [Suspect]
     Active Substance: LEVOCETIRIZINE DIHYDROCHLORIDE
     Indication: Eosinophilic granulomatosis with polyangiitis
     Dosage: 5 MILLIGRAM
     Dates: start: 20210303, end: 20210409
  2. XYZAL [Suspect]
     Active Substance: LEVOCETIRIZINE DIHYDROCHLORIDE
     Indication: Off label use
  3. MEPOLIZUMAB [Suspect]
     Active Substance: MEPOLIZUMAB
     Indication: Eosinophilic granulomatosis with polyangiitis
     Dosage: 300 MILLIGRAM
     Route: 058
     Dates: start: 20200710, end: 20200710
  4. MEPOLIZUMAB [Suspect]
     Active Substance: MEPOLIZUMAB
     Dosage: 300 MILLIGRAM
     Route: 058
     Dates: start: 20200807, end: 20200807
  5. MEPOLIZUMAB [Suspect]
     Active Substance: MEPOLIZUMAB
     Dosage: 300 MILLIGRAM
     Route: 058
     Dates: start: 20200904, end: 20200904
  6. MEPOLIZUMAB [Suspect]
     Active Substance: MEPOLIZUMAB
     Dosage: 300 MILLIGRAM
     Route: 058
     Dates: start: 20201002, end: 20201002
  7. MEPOLIZUMAB [Suspect]
     Active Substance: MEPOLIZUMAB
     Dosage: 300 MILLIGRAM
     Route: 058
     Dates: start: 20201030, end: 20201030
  8. MEPOLIZUMAB [Suspect]
     Active Substance: MEPOLIZUMAB
     Dosage: 300 MILLIGRAM
     Route: 058
     Dates: start: 20201202, end: 20201202
  9. MEPOLIZUMAB [Suspect]
     Active Substance: MEPOLIZUMAB
     Dosage: 300 MILLIGRAM
     Route: 058
     Dates: start: 20210106, end: 20210106
  10. MEPOLIZUMAB [Suspect]
     Active Substance: MEPOLIZUMAB
     Dosage: 300 MILLIGRAM
     Route: 058
     Dates: start: 20210203, end: 20210203
  11. MEPOLIZUMAB [Suspect]
     Active Substance: MEPOLIZUMAB
     Dosage: 300 MILLIGRAM
     Route: 058
     Dates: start: 20210303, end: 20210303
  12. MEPOLIZUMAB [Suspect]
     Active Substance: MEPOLIZUMAB
     Dosage: 300 MILLIGRAM
     Route: 058
     Dates: start: 20210409, end: 20210409
  13. MEPOLIZUMAB [Suspect]
     Active Substance: MEPOLIZUMAB
     Dosage: 300 MILLIGRAM
     Route: 058
     Dates: start: 20210507, end: 20210507
  14. MEPOLIZUMAB [Suspect]
     Active Substance: MEPOLIZUMAB
     Dosage: 300 MILLIGRAM
     Route: 058
     Dates: start: 20210604, end: 20210604
  15. MEPOLIZUMAB [Suspect]
     Active Substance: MEPOLIZUMAB
     Dosage: 300 MILLIGRAM
     Route: 058
     Dates: start: 20210702, end: 20210702
  16. MEPOLIZUMAB [Suspect]
     Active Substance: MEPOLIZUMAB
     Dosage: 300 MILLIGRAM
     Route: 058
     Dates: start: 20210806, end: 20210806
  17. MEPOLIZUMAB [Suspect]
     Active Substance: MEPOLIZUMAB
     Dosage: 300 MILLIGRAM
     Route: 058
     Dates: start: 20210903, end: 20210903
  18. MEPOLIZUMAB [Suspect]
     Active Substance: MEPOLIZUMAB
     Dosage: 300 MILLIGRAM
     Route: 058
     Dates: start: 20211001, end: 20211001
  19. MEPOLIZUMAB [Suspect]
     Active Substance: MEPOLIZUMAB
     Dosage: 300 MILLIGRAM
     Route: 058
     Dates: start: 20211029, end: 20211029
  20. MEPOLIZUMAB [Suspect]
     Active Substance: MEPOLIZUMAB
     Dosage: 300 MILLIGRAM
     Route: 058
     Dates: start: 20211126, end: 20211126
  21. MEPOLIZUMAB [Suspect]
     Active Substance: MEPOLIZUMAB
     Dosage: 300 MILLIGRAM
     Route: 058
     Dates: start: 20211224, end: 20211224
  22. MEPOLIZUMAB [Suspect]
     Active Substance: MEPOLIZUMAB
     Dosage: 300 MILLIGRAM
     Route: 058
     Dates: start: 20220121, end: 20220121
  23. MEPOLIZUMAB [Suspect]
     Active Substance: MEPOLIZUMAB
     Dosage: 300 MILLIGRAM
     Route: 058
     Dates: start: 20220121, end: 20220121
  24. MEPOLIZUMAB [Suspect]
     Active Substance: MEPOLIZUMAB
     Dosage: 300 MILLIGRAM
     Route: 058
     Dates: start: 20220218, end: 20220218
  25. MEPOLIZUMAB [Suspect]
     Active Substance: MEPOLIZUMAB
     Dosage: 300 MILLIGRAM
     Route: 058
     Dates: start: 20220318, end: 20220318
  26. MEPOLIZUMAB [Suspect]
     Active Substance: MEPOLIZUMAB
     Dosage: 300 MILLIGRAM
     Route: 058
     Dates: start: 20220415, end: 20220415
  27. MEPOLIZUMAB [Suspect]
     Active Substance: MEPOLIZUMAB
     Dosage: 300 MILLIGRAM
     Route: 058
     Dates: start: 20220513
  28. PREDNISOLONE [Concomitant]
     Active Substance: PREDNISOLONE
     Indication: Asthma
     Dosage: UNK
     Route: 048
     Dates: start: 20200630, end: 20210303
  29. PREDNISOLONE [Concomitant]
     Active Substance: PREDNISOLONE
     Indication: Eosinophilic granulomatosis with polyangiitis
     Dosage: 40 MG, 1D
     Dates: start: 20200630, end: 20200702
  30. PREDNISOLONE [Concomitant]
     Active Substance: PREDNISOLONE
     Dosage: 30 MG, 1D
     Dates: start: 20200703, end: 20200709
  31. PREDNISOLONE [Concomitant]
     Active Substance: PREDNISOLONE
     Dosage: 25 MG, 1D
     Dates: start: 20200710, end: 20200806
  32. PREDNISOLONE [Concomitant]
     Active Substance: PREDNISOLONE
     Dosage: 20 MG, 1D
     Dates: start: 20200807, end: 20200903
  33. PREDNISOLONE [Concomitant]
     Active Substance: PREDNISOLONE
     Dosage: 15 MG, 1D
     Dates: start: 20200904, end: 20201001
  34. PREDNISOLONE [Concomitant]
     Active Substance: PREDNISOLONE
     Dosage: 10 MG, 1D
     Dates: start: 20201002, end: 20201029
  35. FLUTICASONE FUROATE\VILANTEROL TRIFENATATE [Concomitant]
     Active Substance: FLUTICASONE FUROATE\VILANTEROL TRIFENATATE
     Indication: Asthma
     Dosage: UNK
     Route: 055
     Dates: end: 20201201
  36. MIROGABALIN BESYLATE [Concomitant]
     Active Substance: MIROGABALIN BESYLATE
     Indication: Eosinophilic granulomatosis with polyangiitis
  37. TRAMCET [Concomitant]
     Active Substance: ACETAMINOPHEN\TRAMADOL
     Indication: Eosinophilic granulomatosis with polyangiitis
  38. CYMBALTA [Concomitant]
     Active Substance: DULOXETINE HYDROCHLORIDE
     Indication: Eosinophilic granulomatosis with polyangiitis
  39. ORYCTOLAGUS CUNICULUS SKIN [Concomitant]
     Active Substance: ORYCTOLAGUS CUNICULUS SKIN
     Indication: Eosinophilic granulomatosis with polyangiitis
  40. METHYLPREDNISOLONE [Concomitant]
     Active Substance: METHYLPREDNISOLONE
     Indication: Asthma
     Dosage: UNK
     Dates: start: 20200619, end: 20200629
  41. METHYLPREDNISOLONE [Concomitant]
     Active Substance: METHYLPREDNISOLONE
     Indication: Eosinophilic granulomatosis with polyangiitis
     Dosage: 50 MG
     Route: 042
     Dates: start: 20200619, end: 20200625
  42. METHYLPREDNISOLONE [Concomitant]
     Active Substance: METHYLPREDNISOLONE
     Dosage: 40 MG
     Route: 042
     Dates: start: 20200626, end: 20200629
  43. KENKETSU VENILON I [Concomitant]
     Indication: Product used for unknown indication
     Dosage: UNK
     Dates: start: 20200623, end: 20200627
  44. SENNOSIDES [Concomitant]
     Active Substance: SENNOSIDES
     Indication: Product used for unknown indication

REACTIONS (6)
  - Ileus [Unknown]
  - Constipation [Unknown]
  - Eosinophilic granulomatosis with polyangiitis [Recovering/Resolving]
  - Off label use [Unknown]
  - Product use in unapproved indication [Unknown]
  - Inappropriate schedule of product administration [Unknown]

NARRATIVE: CASE EVENT DATE: 20210303
